FAERS Safety Report 4935029-8 (Version None)
Quarter: 2006Q1

REPORT INFORMATION
  Report Type: 
  Country: None (occurrence: None)
  Receive Date: 20060306
  Receipt Date: 20060306
  Transmission Date: 20060701
  Serious: Yes (Other)
  Sender: FDA-Public Use
  Company Number: None

PATIENT
  Sex: Male
  Weight: 52.1637 kg

DRUGS (1)
  1. RANITIDINE [Suspect]
     Dosage: 50 MG Q 8 HRS IV
     Route: 042
     Dates: start: 20060107, end: 20060110

REACTIONS (1)
  - THROMBOCYTOPENIA [None]
